FAERS Safety Report 8842294 (Version 3)
Quarter: 2013Q1

REPORT INFORMATION
  Report Type: Spontaneous
  Country: US (occurrence: US)
  Receive Date: 20121016
  Receipt Date: 20130108
  Transmission Date: 20140127
  Serious: No
  Sender: FDA-Public Use
  Company Number: US-009507513-1210USA001442

PATIENT
  Age: 25 Year
  Sex: Female
  Weight: 117.91 kg

DRUGS (2)
  1. IMPLANON [Suspect]
     Indication: CONTRACEPTION
     Dosage: UNK
     Dates: start: 20120504
  2. IRON (UNSPECIFIED) [Concomitant]

REACTIONS (2)
  - Pain [Unknown]
  - Medical device complication [Unknown]
